FAERS Safety Report 8573133-6 (Version None)
Quarter: 2012Q3

REPORT INFORMATION
  Report Type: 
  Country: None (occurrence: None)
  Receive Date: 20120806
  Receipt Date: 20120723
  Transmission Date: 20120928
  Serious: Yes (Hospitalization, Other)
  Sender: FDA-Public Use
  Company Number: US-ACTELION-A-NJ2009-27945

PATIENT
  Age: 37 Year
  Sex: Female

DRUGS (8)
  1. SILDENAFIL [Concomitant]
     Indication: PULMONARY ARTERIAL HYPERTENSION
  2. ENOXAPARIN [Concomitant]
  3. TRACLEER [Suspect]
     Indication: PULMONARY ARTERIAL HYPERTENSION
     Dosage: 125 MG, BID
     Route: 048
     Dates: start: 20060308, end: 20090101
  4. REMODULIN [Concomitant]
  5. TRACLEER [Suspect]
     Route: 048
     Dates: start: 20090623
  6. SPIRONOLACTONE [Concomitant]
  7. WARFARIN SODIUM [Concomitant]
  8. DIGOXIN [Concomitant]

REACTIONS (7)
  - HEADACHE [None]
  - PULMONARY ARTERIAL HYPERTENSION [None]
  - PREGNANCY [None]
  - PREMATURE BABY [None]
  - DISEASE PROGRESSION [None]
  - RIGHT VENTRICULAR FAILURE [None]
  - CAESAREAN SECTION [None]
